FAERS Safety Report 8100882-6 (Version None)
Quarter: 2012Q1

REPORT INFORMATION
  Report Type: 
  Country: None (occurrence: None)
  Receive Date: 20120129
  Receipt Date: 20110907
  Transmission Date: 20120608
  Serious: No
  Sender: FDA-Public Use
  Company Number: US-ABBOTT-11P-163-0853030-00

PATIENT
  Sex: Female

DRUGS (5)
  1. MALOXICAM [Concomitant]
     Indication: RHEUMATOID ARTHRITIS
  2. PREDNISONE TAB [Concomitant]
     Indication: RHEUMATOID ARTHRITIS
  3. UNKNOWN FUNGAL CREAM [Concomitant]
     Indication: SKIN INFECTION
  4. AMLODIPINE [Concomitant]
     Indication: HYPERTENSION
  5. HUMIRA [Suspect]
     Indication: RHEUMATOID ARTHRITIS
     Dates: start: 20080101

REACTIONS (4)
  - RASH [None]
  - SKIN INFECTION [None]
  - SWELLING FACE [None]
  - ILL-DEFINED DISORDER [None]
